FAERS Safety Report 8560151-7 (Version None)
Quarter: 2012Q3

REPORT INFORMATION
  Report Type: 
  Country: None (occurrence: None)
  Receive Date: 20120712
  Receipt Date: 20120712
  Transmission Date: 20120928
  Serious: Yes (Hospitalization)
  Sender: FDA-Public Use
  Company Number: 2012MA008787

PATIENT
  Age: 47 Year
  Sex: Female

DRUGS (2)
  1. DOCETAXEL [Suspect]
     Indication: UTERINE CANCER
     Dosage: ;IV
     Route: 042
     Dates: start: 20120116, end: 20120116
  2. GEMCITABINE HYDROCHLORIDE [Suspect]
     Indication: UTERINE CANCER
     Dosage: ;IV
     Route: 042
     Dates: start: 20120116, end: 20120116

REACTIONS (4)
  - DIARRHOEA [None]
  - FATIGUE [None]
  - BONE PAIN [None]
  - NEUTROPENIA [None]
